FAERS Safety Report 4640533-6 (Version None)
Quarter: 2005Q2

REPORT INFORMATION
  Report Type: 
  Country: None (occurrence: None)
  Receive Date: 20050420
  Receipt Date: 20041214
  Transmission Date: 20051028
  Serious: Yes (Other)
  Sender: FDA-Public Use
  Company Number: PHBS2004BE16916

PATIENT
  Age: 34 Year
  Sex: Female
  Weight: 86 kg

DRUGS (3)
  1. METHERGINE [Suspect]
     Indication: ABORTION MISSED
     Dosage: 15 DRP, QD
     Route: 048
     Dates: start: 20041112, end: 20041112
  2. METHERGINE [Suspect]
     Dosage: 15 DRP, TID
     Route: 048
     Dates: start: 20041113, end: 20041113
  3. METHERGINE [Suspect]
     Dosage: 15 DRP, QD
     Route: 048
     Dates: start: 20041114, end: 20041114

REACTIONS (3)
  - DRUG EXPOSURE DURING PREGNANCY [None]
  - NORMAL NEWBORN [None]
  - PLACENTA PRAEVIA [None]
